FAERS Safety Report 11715256 (Version 2)
Quarter: 2015Q4

REPORT INFORMATION
  Report Type: Spontaneous
  Country: US (occurrence: US)
  Receive Date: 20151109
  Receipt Date: 20151211
  Transmission Date: 20160304
  Serious: Yes (Other)
  Sender: FDA-Public Use
  Company Number: US-PFIZER INC-2015377962

PATIENT
  Age: 62 Year
  Sex: Female
  Weight: 81 kg

DRUGS (6)
  1. LIPITOR [Suspect]
     Active Substance: ATORVASTATIN CALCIUM
     Dosage: 20 MG, DAILY (PER DAY)
     Route: 048
     Dates: start: 20091204, end: 20130211
  2. MULTIVITAMINS [Concomitant]
     Active Substance: VITAMINS
     Indication: ROUTINE HEALTH MAINTENANCE
     Dosage: UNK, DAILY (ONE PER DAY)
     Dates: start: 1970
  3. OMEGA 3 FISH OIL [Concomitant]
     Active Substance: FISH OIL\OMEGA-3 FATTY ACIDS
     Indication: BLOOD TRIGLYCERIDES INCREASED
     Dosage: 1200 MG, DAILY (PER DAY)
     Dates: start: 2009
  4. L-LYSINE [Concomitant]
     Active Substance: LYSINE
     Indication: ORAL HERPES
     Dosage: 500 MG, DAILY (PER DAY)
     Dates: start: 1975
  5. LIPITOR [Suspect]
     Active Substance: ATORVASTATIN CALCIUM
     Indication: HYPERLIPIDAEMIA
     Dosage: 20 MG, DAILY (PER DAY)
     Route: 048
     Dates: start: 20020601, end: 20040625
  6. LIPITOR [Suspect]
     Active Substance: ATORVASTATIN CALCIUM
     Dosage: 20 MG, DAILY (PER DAY)
     Route: 048
     Dates: start: 20061116

REACTIONS (1)
  - Type 2 diabetes mellitus [Not Recovered/Not Resolved]

NARRATIVE: CASE EVENT DATE: 20100415
